FAERS Safety Report 15135151 (Version 1)
Quarter: 2018Q3

REPORT INFORMATION
  Report Type: Report from Study
  Country: US (occurrence: US)
  Receive Date: 20180712
  Receipt Date: 20180712
  Transmission Date: 20181010
  Serious: Yes (Hospitalization)
  Sender: FDA-Public Use
  Company Number: US-JNJFOC-20180714028

PATIENT
  Sex: Male

DRUGS (7)
  1. LOSARTAN. [Concomitant]
     Active Substance: LOSARTAN
  2. IMBRUVICA [Suspect]
     Active Substance: IBRUTINIB
     Indication: MANTLE CELL LYMPHOMA
     Route: 048
     Dates: start: 20180418
  3. ELIQUIS [Concomitant]
     Active Substance: APIXABAN
  4. LEVOTHYROXINE. [Concomitant]
     Active Substance: LEVOTHYROXINE
  5. CARVEDILOL. [Concomitant]
     Active Substance: CARVEDILOL
  6. IMBRUVICA [Suspect]
     Active Substance: IBRUTINIB
     Indication: CHRONIC LYMPHOCYTIC LEUKAEMIA
     Route: 048
     Dates: start: 20180418
  7. ALLOPURINOL. [Concomitant]
     Active Substance: ALLOPURINOL
     Route: 065

REACTIONS (2)
  - Dyspnoea [Unknown]
  - Renal disorder [Unknown]
